FAERS Safety Report 6051378-7 (Version None)
Quarter: 2009Q1

REPORT INFORMATION
  Report Type: 
  Country: None (occurrence: None)
  Receive Date: 20090121
  Receipt Date: 20090121
  Transmission Date: 20090719
  Serious: Yes (Life-Threatening, Hospitalization)
  Sender: FDA-Public Use
  Company Number: None

PATIENT
  Age: 21 Year
  Sex: Female
  Weight: 62.5 kg

DRUGS (1)
  1. LAMICTAL [Suspect]
     Indication: BIPOLAR DISORDER
     Dosage: 25 MG DAILY PO
     Route: 048
     Dates: start: 20081206, end: 20081230

REACTIONS (8)
  - ABDOMINAL PAIN [None]
  - DIARRHOEA [None]
  - DISCOMFORT [None]
  - HEADACHE [None]
  - MUSCLE TIGHTNESS [None]
  - MYALGIA [None]
  - SINUS HEADACHE [None]
  - SWELLING FACE [None]
